FAERS Safety Report 12030258 (Version 2)
Quarter: 2016Q1

REPORT INFORMATION
  Report Type: Spontaneous
  Country: JP (occurrence: JP)
  Receive Date: 20160207
  Receipt Date: 20160302
  Transmission Date: 20160526
  Serious: Yes (Other)
  Sender: FDA-Public Use
  Company Number: JP-TEVA-633216ISR

PATIENT
  Age: 61 Year
  Sex: Male

DRUGS (2)
  1. CISPLATIN. [Suspect]
     Active Substance: CISPLATIN
     Indication: EXTRAMAMMARY PAGET^S DISEASE
  2. FLUOROURACIL. [Suspect]
     Active Substance: FLUOROURACIL
     Indication: EXTRAMAMMARY PAGET^S DISEASE

REACTIONS (2)
  - Decreased appetite [Unknown]
  - Pancytopenia [Unknown]
